FAERS Safety Report 7997474-6 (Version None)
Quarter: 2011Q4

REPORT INFORMATION
  Report Type: 
  Country: None (occurrence: None)
  Receive Date: 20111221
  Receipt Date: 20111221
  Transmission Date: 20120403
  Serious: Yes (Other)
  Sender: FDA-Public Use
  Company Number: None

PATIENT
  Age: 59 Year
  Sex: Female

DRUGS (2)
  1. CIPROFLOXACIN [Suspect]
     Indication: INFECTION
     Dosage: 100MG
     Route: 048
     Dates: start: 20111205, end: 20111211
  2. CIPROFLOXACIN [Suspect]
     Indication: SEROMA
     Dosage: 100MG
     Route: 048
     Dates: start: 20111205, end: 20111211

REACTIONS (2)
  - RASH PRURITIC [None]
  - BURNING SENSATION [None]
